FAERS Safety Report 15622396 (Version 3)
Quarter: 2019Q1

REPORT INFORMATION
  Report Type: Spontaneous
  Country: BR (occurrence: BR)
  Receive Date: 20181115
  Receipt Date: 20190107
  Transmission Date: 20190417
  Serious: Yes (Other)
  Sender: FDA-Public Use
  Company Number: BR-BIOMARINAP-BR-2018-120750

PATIENT
  Age: 17 Year
  Sex: Male
  Weight: 55 kg

DRUGS (1)
  1. ALDURAZYME [Suspect]
     Active Substance: LARONIDASE
     Indication: MUCOPOLYSACCHARIDOSIS
     Dosage: 20 DOSAGE FORM, QOW
     Route: 041
     Dates: start: 20180501

REACTIONS (5)
  - Unevaluable event [Unknown]
  - Blindness [Unknown]
  - Eye disorder [Unknown]
  - Syncope [Unknown]
  - Spinal cord compression [Unknown]
